FAERS Safety Report 17023663 (Version 1)
Quarter: 2019Q4

REPORT INFORMATION
  Report Type: Spontaneous
  Country: US (occurrence: US)
  Receive Date: 20191113
  Receipt Date: 20191113
  Transmission Date: 20200122
  Serious: No
  Sender: FDA-Public Use
  Company Number: US-JNJFOC-20191109742

PATIENT
  Age: 75 Year
  Sex: Female
  Weight: 63.56 kg

DRUGS (1)
  1. CHILDRENS TYLENOL [Suspect]
     Active Substance: ACETAMINOPHEN
     Indication: PRODUCT USED FOR UNKNOWN INDICATION
     Dosage: 10 OR 12 ML ONE TO THREE MONTHS
     Route: 048

REACTIONS (1)
  - Product administered to patient of inappropriate age [Unknown]
